FAERS Safety Report 4431705-4 (Version None)
Quarter: 2004Q3

REPORT INFORMATION
  Report Type: 
  Country: None (occurrence: None)
  Receive Date: 20040818
  Receipt Date: 20040804
  Transmission Date: 20050211
  Serious: Yes (Hospitalization)
  Sender: FDA-Public Use
  Company Number: USA040874485

PATIENT
  Age: 75 Year
  Sex: Male
  Weight: 95 kg

DRUGS (2)
  1. HUMULIN R [Suspect]
     Dosage: 11 U DAY
  2. HUMULIN N [Suspect]
     Dosage: 58 U DAY

REACTIONS (4)
  - BLADDER DISORDER [None]
  - NEUROPATHY [None]
  - PAIN [None]
  - PHARMACEUTICAL PRODUCT COMPLAINT [None]
